FAERS Safety Report 6404767-2 (Version None)
Quarter: 2009Q4

REPORT INFORMATION
  Report Type: 
  Country: None (occurrence: None)
  Receive Date: 20091016
  Receipt Date: 20091007
  Transmission Date: 20100525
  Serious: Yes (Death)
  Sender: FDA-Public Use
  Company Number: JP-ABBOTT-09P-087-0599232-00

PATIENT
  Age: 92 Year
  Sex: Male

DRUGS (7)
  1. LEUPLIN SR FOR INJECTION 11.25 MG [Suspect]
     Indication: PROSTATE CANCER STAGE IV
     Route: 058
     Dates: start: 20070210, end: 20080121
  2. CASODEX [Concomitant]
     Indication: PROSTATE CANCER STAGE IV
     Route: 048
     Dates: start: 20070111, end: 20080318
  3. BEZAFIBRATE SR [Concomitant]
     Indication: HYPERLIPIDAEMIA
     Route: 048
     Dates: end: 20080324
  4. ALDACTONE [Concomitant]
     Indication: HYPERTENSION
     Route: 048
     Dates: end: 20080324
  5. NU-LOTAN [Concomitant]
     Indication: HYPERTENSION
     Route: 048
     Dates: end: 20080324
  6. DIGOSIN [Concomitant]
     Indication: CARDIAC FAILURE
     Route: 048
     Dates: end: 20080324
  7. GLYCERYL TRINITRATE [Concomitant]
     Indication: ANGINA PECTORIS
     Route: 062
     Dates: end: 20080324

REACTIONS (2)
  - PANCREATITIS ACUTE [None]
  - PNEUMONIA [None]
